FAERS Safety Report 11109482 (Version 5)
Quarter: 2020Q1

REPORT INFORMATION
  Report Type: Spontaneous
  Country: FR (occurrence: FR)
  Receive Date: 20150513
  Receipt Date: 20200211
  Transmission Date: 20200409
  Serious: Yes (Life-Threatening, Hospitalization, Disabling, Other)
  Sender: FDA-Public Use
  Company Number: FR-SA-2015SA061351

PATIENT
  Age: 39 Year
  Sex: Female

DRUGS (9)
  1. METHYLPREDNISOLONE. [Concomitant]
     Active Substance: METHYLPREDNISOLONE
     Indication: PREMEDICATION
     Dosage: UNK
     Route: 048
  2. OMEPRAZOLE. [Concomitant]
     Active Substance: OMEPRAZOLE
     Indication: PREMEDICATION
     Route: 048
  3. KARDEGIC [Concomitant]
     Active Substance: ASPIRIN DL-LYSINE
     Indication: ANTIPLATELET THERAPY
     Dosage: 75 MG
     Route: 065
  4. CETRIZINE [Concomitant]
     Active Substance: CETIRIZINE HYDROCHLORIDE
     Indication: PREMEDICATION
     Route: 048
  5. DIMETHYL FUMARATE [Concomitant]
     Active Substance: DIMETHYL FUMARATE
     Indication: RELAPSING-REMITTING MULTIPLE SCLEROSIS
     Dosage: UNK
     Dates: start: 201410
  6. DEXCHLORPHENIRAMINE [Concomitant]
     Active Substance: DEXCHLORPHENIRAMINE
     Indication: PREMEDICATION
  7. LEMTRADA [Suspect]
     Active Substance: ALEMTUZUMAB
     Indication: RELAPSING-REMITTING MULTIPLE SCLEROSIS
     Dosage: 12 MG,QD
     Route: 041
     Dates: start: 20150527, end: 20150531
  8. PARACETAMOL [Concomitant]
     Active Substance: ACETAMINOPHEN
     Indication: PREMEDICATION
     Route: 048
  9. VALACYCLOVIR [Concomitant]
     Active Substance: VALACYCLOVIR HYDROCHLORIDE
     Indication: PREMEDICATION
     Route: 048

REACTIONS (11)
  - Hemiplegia [Not Recovered/Not Resolved]
  - Artery dissection [Recovered/Resolved with Sequelae]
  - Blindness [Unknown]
  - Eye pain [Unknown]
  - Aphasia [Not Recovered/Not Resolved]
  - Motor dysfunction [Recovering/Resolving]
  - Visual acuity reduced [Unknown]
  - Vision blurred [Unknown]
  - Ischaemic stroke [Recovering/Resolving]
  - Optic neuropathy [Unknown]
  - Fatigue [Unknown]

NARRATIVE: CASE EVENT DATE: 2015
